FAERS Safety Report 10916235 (Version 2)
Quarter: 2015Q2

REPORT INFORMATION
  Report Type: Spontaneous
  Country: JP (occurrence: JP)
  Receive Date: 20150316
  Receipt Date: 20150407
  Transmission Date: 20150821
  Serious: Yes (Other)
  Sender: FDA-Public Use
  Company Number: JP-TEVA-547814ISR

PATIENT
  Age: 55 Year
  Sex: Female

DRUGS (38)
  1. ROHYPNOL [Concomitant]
     Active Substance: FLUNITRAZEPAM
     Indication: DEPRESSION
     Dosage: 1 MILLIGRAM DAILY;
     Route: 048
  2. URSODEOXYCHOLIC ACID [Concomitant]
     Active Substance: URSODIOL
     Indication: CONSTIPATION
     Dosage: 300 MILLIGRAM DAILY;
     Route: 048
     Dates: start: 20141009
  3. GLUFAST [Concomitant]
     Active Substance: MITIGLINIDE
     Dosage: 30 MILLIGRAM DAILY;
     Route: 048
     Dates: start: 20140110
  4. PAXIL [Concomitant]
     Active Substance: PAROXETINE HYDROCHLORIDE
     Indication: DEPRESSION
     Dosage: 10 MILLIGRAM DAILY;
     Route: 048
  5. LOXOPROFEN [Concomitant]
     Active Substance: LOXOPROFEN
     Indication: PAIN
     Dosage: 60 MILLIGRAM DAILY;
     Route: 048
     Dates: start: 20141019, end: 20141216
  6. DEXART [Concomitant]
     Active Substance: DEXAMETHASONE SODIUM PHOSPHATE
     Indication: PROPHYLAXIS
     Dosage: 6.6 MILLIGRAM DAILY;
     Route: 042
     Dates: start: 20141007
  7. ULTIVA [Concomitant]
     Active Substance: REMIFENTANIL HYDROCHLORIDE
     Dosage: 10 MILLIGRAM DAILY;
     Route: 042
     Dates: start: 20141202
  8. CARBOPLATIN. [Concomitant]
     Active Substance: CARBOPLATIN
     Dosage: 930 MILLIGRAM DAILY;
     Route: 042
     Dates: start: 20150107, end: 20150107
  9. FILGRASTIM BS INJ. NK (FILGRASTIM [GENETICAL RECOMBINATION]) [Suspect]
     Active Substance: FILGRASTIM
     Indication: NEUTROPENIA
     Dosage: 75 MICROGRAM/M2 DAILY;
     Route: 058
     Dates: start: 20141019, end: 20141021
  10. FILGRASTIM BS INJ. NK (FILGRASTIM [GENETICAL RECOMBINATION]) [Suspect]
     Active Substance: FILGRASTIM
     Dosage: 75 MICROGRAM/M2 DAILY;
     Route: 058
     Dates: start: 20150120, end: 20150122
  11. LANTUS [Concomitant]
     Active Substance: INSULIN GLARGINE
     Indication: DIABETES MELLITUS
     Dosage: 4-12 UNITS/DAY
     Route: 058
     Dates: start: 20141211
  12. KYTRIL [Concomitant]
     Active Substance: GRANISETRON HYDROCHLORIDE
     Indication: PROPHYLAXIS
     Dosage: 50 ML DAILY;
     Route: 042
     Dates: start: 20141007
  13. PRIMPERAN [Concomitant]
     Active Substance: METOCLOPRAMIDE HYDROCHLORIDE
     Dosage: 10 MILLIGRAM DAILY;
     Route: 042
     Dates: start: 20141202, end: 20141203
  14. HEPARIN [Concomitant]
     Active Substance: HEPARIN SODIUM
     Indication: PROPHYLAXIS
     Dosage: .2 ML DAILY;
     Route: 058
     Dates: start: 20141203
  15. PACLITAXEL. [Concomitant]
     Active Substance: PACLITAXEL
     Indication: OVARIAN CANCER
     Dosage: 290 MILLIGRAM DAILY;
     Route: 042
     Dates: start: 20141007, end: 20141007
  16. FILGRASTIM BS INJ. NK (FILGRASTIM [GENETICAL RECOMBINATION]) [Suspect]
     Active Substance: FILGRASTIM
     Dosage: 75 MICROGRAM/M2 DAILY;
     Route: 058
     Dates: start: 20141107, end: 20141110
  17. RISPERDAL [Concomitant]
     Active Substance: RISPERIDONE
     Indication: DEPRESSION
     Dosage: 1 MILLIGRAM DAILY;
     Route: 048
     Dates: start: 20140922
  18. FENTANYL. [Concomitant]
     Active Substance: FENTANYL
     Dosage: 10 ML DAILY;
     Route: 042
     Dates: start: 20141202
  19. GASTER [Concomitant]
     Active Substance: FAMOTIDINE
     Dosage: 20 MILLIGRAM DAILY;
     Route: 042
     Dates: start: 20141202
  20. PACLITAXEL. [Concomitant]
     Active Substance: PACLITAXEL
     Dosage: 290 MILLIGRAM DAILY;
     Route: 042
     Dates: start: 20141028, end: 20141028
  21. PACLITAXEL. [Concomitant]
     Active Substance: PACLITAXEL
     Dosage: 290 MILLIGRAM DAILY;
     Route: 042
     Dates: start: 20150107, end: 20150107
  22. STARSIS [Concomitant]
     Active Substance: NATEGLINIDE
     Dosage: 270 MILLIGRAM DAILY;
     Route: 048
     Dates: end: 20150110
  23. DAIKENCHUTO [Concomitant]
     Active Substance: HERBALS
     Indication: PROPHYLAXIS
     Dosage: 15 GRAM DAILY;
     Route: 048
     Dates: start: 20141205
  24. RANITIDIN [Concomitant]
     Active Substance: RANITIDINE HYDROCHLORIDE
     Indication: PROPHYLAXIS
     Dosage: 50 MILLIGRAM DAILY;
     Route: 042
     Dates: start: 20141007
  25. HUMALOG [Concomitant]
     Active Substance: INSULIN LISPRO
     Indication: DIABETES MELLITUS
     Dosage: 4 IU (INTERNATIONAL UNIT) DAILY;
     Route: 058
     Dates: start: 20141007
  26. LENDORMIN D [Concomitant]
     Active Substance: BROTIZOLAM
     Indication: INSOMNIA
     Dosage: 25 MILLIGRAM DAILY;
     Route: 048
  27. EMEND [Concomitant]
     Active Substance: APREPITANT
     Indication: PROPHYLAXIS
     Dosage: 1 MILLIGRAM DAILY; 80-125 MG /DAY
     Route: 048
     Dates: start: 20141007
  28. CARBOPLATIN. [Concomitant]
     Active Substance: CARBOPLATIN
     Indication: OVARIAN CANCER
     Dosage: 930 MILLIGRAM DAILY;
     Route: 042
     Dates: start: 20141007, end: 20141007
  29. MAGMITT [Concomitant]
     Active Substance: MAGNESIUM OXIDE
     Indication: CONSTIPATION
     Dosage: 1500 MILLIGRAM DAILY;
     Route: 048
     Dates: start: 20141009
  30. PURSENNID [Concomitant]
     Active Substance: SENNOSIDES A AND B
     Indication: CONSTIPATION
     Dosage: 24 MILLIGRAM DAILY;
     Route: 048
     Dates: start: 20141010
  31. CLEXANE [Concomitant]
     Active Substance: ENOXAPARIN SODIUM
     Indication: PROPHYLAXIS
     Dosage: 2000 IU (INTERNATIONAL UNIT) DAILY;
     Route: 058
     Dates: start: 20141204, end: 20141208
  32. CARBOPLATIN. [Concomitant]
     Active Substance: CARBOPLATIN
     Dosage: 930 MILLIGRAM DAILY;
     Route: 042
     Dates: start: 20141028, end: 20141028
  33. CARBOPLATIN. [Concomitant]
     Active Substance: CARBOPLATIN
     Dosage: 930 MILLIGRAM DAILY;
     Route: 042
     Dates: start: 20141215, end: 20141215
  34. MUCODYNE [Concomitant]
     Active Substance: CARBOCYSTEINE
     Dosage: 1500 MILLIGRAM DAILY;
     Route: 048
     Dates: start: 20141021, end: 20141029
  35. LIOVEL [Concomitant]
     Active Substance: ALOGLIPTIN BENZOATE\PIOGLITAZONE HYDROCHLORIDE
     Indication: DIABETES MELLITUS
     Dosage: 1 DOSAGE FORMS DAILY;
     Route: 048
  36. CEFCAPENE PIVOXIL HYDROCHLORIDE [Concomitant]
     Active Substance: CEFCAPENE PIVOXIL HYDROCHLORIDE
     Indication: PROPHYLAXIS
     Dosage: 300 MILLIGRAM DAILY;
     Route: 048
     Dates: start: 20141210, end: 20141216
  37. PACLITAXEL. [Concomitant]
     Active Substance: PACLITAXEL
     Dosage: 290 MILLIGRAM DAILY;
     Route: 042
     Dates: start: 20141215, end: 20141215
  38. POLARAMINE [Concomitant]
     Active Substance: DEXCHLORPHENIRAMINE MALEATE
     Dosage: 5 MILLIGRAM DAILY;
     Route: 042
     Dates: start: 20141007

REACTIONS (1)
  - Circulatory collapse [Recovering/Resolving]

NARRATIVE: CASE EVENT DATE: 20141202
